FAERS Safety Report 8167849-3 (Version None)
Quarter: 2012Q1

REPORT INFORMATION
  Report Type: 
  Country: None (occurrence: None)
  Receive Date: 20120227
  Receipt Date: 20120215
  Transmission Date: 20120608
  Serious: Yes (Hospitalization)
  Sender: FDA-Public Use
  Company Number: CA-ROCHE-GNE321388

PATIENT
  Sex: Male
  Weight: 80.787 kg

DRUGS (10)
  1. RANIBIZUMAB [Suspect]
     Indication: DIABETIC RETINAL OEDEMA
     Dosage: 0.5 MG/0.05 ML
     Route: 050
     Dates: start: 20100311, end: 20100311
  2. RANIBIZUMAB [Suspect]
     Dosage: 0.5 MG/0.05 ML
     Route: 050
     Dates: start: 20110912, end: 20110912
  3. PREVACID [Concomitant]
  4. RANIBIZUMAB [Suspect]
     Dosage: 0.5 MG/0.05 ML
     Route: 050
     Dates: start: 20110408, end: 20110408
  5. VITAMIN B-12 [Concomitant]
     Indication: PRODUCT USED FOR UNKNOWN INDICATION
  6. LEVOFLOXACIN [Concomitant]
  7. INSULIN [Concomitant]
     Indication: PRODUCT USED FOR UNKNOWN INDICATION
  8. XALATAN [Concomitant]
     Indication: PRODUCT USED FOR UNKNOWN INDICATION
  9. RANIBIZUMAB [Suspect]
     Dosage: 0.5 MG/0.05 ML
     Route: 050
     Dates: start: 20110509, end: 20110509
  10. FLAGYL [Concomitant]

REACTIONS (1)
  - SEPSIS [None]
